FAERS Safety Report 6039201-8 (Version None)
Quarter: 2009Q1

REPORT INFORMATION
  Report Type: 
  Country: None (occurrence: None)
  Receive Date: 20090115
  Receipt Date: 20081128
  Transmission Date: 20090719
  Serious: Yes (Death, Hospitalization, Other)
  Sender: FDA-Public Use
  Company Number: AR-PFIZER INC-2008086743

PATIENT

DRUGS (1)
  1. SUTENT [Suspect]
     Indication: RENAL CELL CARCINOMA
     Dosage: 50 MG, 1X/DAY
     Dates: start: 20080701

REACTIONS (5)
  - DISEASE PROGRESSION [None]
  - HEPATIC ENZYME [None]
  - INTESTINAL PERFORATION [None]
  - JAUNDICE [None]
  - RENAL CELL CARCINOMA [None]
